FAERS Safety Report 9920368 (Version 1)
Quarter: 2014Q1

REPORT INFORMATION
  Report Type: Spontaneous
  Country: US (occurrence: US)
  Receive Date: 20140224
  Receipt Date: 20140224
  Transmission Date: 20141002
  Serious: Yes (Hospitalization)
  Sender: FDA-Public Use
  Company Number: US-ABBVIE-14P-163-1204163-00

PATIENT
  Age: 41 Year
  Sex: Male
  Weight: 81.27 kg

DRUGS (3)
  1. ZEMPLAR [Suspect]
     Indication: HYPERPARATHYROIDISM
     Route: 040
     Dates: start: 201312, end: 20140210
  2. ARANESP [Concomitant]
     Indication: ANAEMIA
  3. AMLODIPINE [Concomitant]
     Indication: HYPERTENSION

REACTIONS (3)
  - Heart rate increased [Recovered/Resolved]
  - Supraventricular tachycardia [Recovered/Resolved]
  - Palpitations [Recovered/Resolved]
